FAERS Safety Report 6709632-9 (Version None)
Quarter: 2010Q2

REPORT INFORMATION
  Report Type: 
  Country: None (occurrence: None)
  Receive Date: 20100504
  Receipt Date: 20100425
  Transmission Date: 20101027
  Serious: Yes (Hospitalization)
  Sender: FDA-Public Use
  Company Number: IT-ROCHE-699242

PATIENT
  Sex: Male

DRUGS (5)
  1. AVASTIN [Suspect]
     Indication: RECTOSIGMOID CANCER
     Dosage: DOSE REPORTED :7.5 U/KG.
     Route: 042
     Dates: start: 20090817, end: 20091228
  2. FLUOROURACIL [Concomitant]
     Indication: RECTOSIGMOID CANCER
     Route: 042
     Dates: start: 20090817, end: 20091228
  3. IRINOTECAN HYDROCHLORIDE [Concomitant]
     Indication: RECTOSIGMOID CANCER
     Route: 042
     Dates: start: 20090817, end: 20090828
  4. LEDERFOLIN (CALCIUM LEVOFOLINATE) [Concomitant]
     Indication: RECTOSIGMOID CANCER
     Route: 042
     Dates: start: 20090817, end: 20090828
  5. EPREX [Concomitant]
     Indication: ANAEMIA
     Dosage: DOSE REPORTED AS: 40000 UI.
     Route: 058

REACTIONS (3)
  - PARAESTHESIA [None]
  - TONIC CONVULSION [None]
  - TRISMUS [None]
